APPROVED DRUG PRODUCT: NABUMETONE
Active Ingredient: NABUMETONE
Strength: 750MG
Dosage Form/Route: TABLET;ORAL
Application: A090427 | Product #002
Applicant: MPP PHARMA LLC
Approved: Dec 30, 2011 | RLD: No | RS: No | Type: DISCN